FAERS Safety Report 21857059 (Version 1)
Quarter: 2023Q1

REPORT INFORMATION
  Report Type: Spontaneous
  Country: US (occurrence: US)
  Receive Date: 20230113
  Receipt Date: 20230113
  Transmission Date: 20230418
  Serious: No
  Sender: FDA-Public Use
  Company Number: US-GBT-019282

PATIENT
  Sex: Female

DRUGS (2)
  1. OXBRYTA [Suspect]
     Active Substance: VOXELOTOR
     Indication: Sickle cell disease
  2. PROCRIT [Suspect]
     Active Substance: ERYTHROPOIETIN
     Indication: Sickle cell disease

REACTIONS (3)
  - Sickle cell anaemia with crisis [Unknown]
  - Chest pain [Unknown]
  - Diarrhoea [Unknown]
